FAERS Safety Report 10438598 (Version 1)
Quarter: 2014Q3

REPORT INFORMATION
  Report Type: Report from Study
  Country: LB (occurrence: LB)
  Receive Date: 20140908
  Receipt Date: 20140908
  Transmission Date: 20150326
  Serious: Yes (Death, Hospitalization, Other)
  Sender: FDA-Public Use
  Company Number: PHHY2014LB114734

PATIENT
  Age: 66 Year
  Sex: Female

DRUGS (1)
  1. ACLASTA [Suspect]
     Active Substance: ZOLEDRONIC ACID
     Dosage: UNK
     Route: 042

REACTIONS (5)
  - Lung neoplasm malignant [Fatal]
  - Bradycardia [Unknown]
  - Respiratory disorder [Unknown]
  - Neoplasm malignant [Fatal]
  - Respiratory arrest [Unknown]
